FAERS Safety Report 12503855 (Version 1)
Quarter: 2016Q2

REPORT INFORMATION
  Report Type: Spontaneous
  Country: DE (occurrence: DE)
  Receive Date: 20160628
  Receipt Date: 20160628
  Transmission Date: 20160815
  Serious: Yes (Other)
  Sender: FDA-Public Use
  Company Number: DE-PFIZER INC-2016306707

PATIENT

DRUGS (1)
  1. SORTIS [Suspect]
     Active Substance: ATORVASTATIN
     Dosage: UNK

REACTIONS (1)
  - Gamma-glutamyltransferase increased [Unknown]
